FAERS Safety Report 14456031 (Version 2)
Quarter: 2018Q1

REPORT INFORMATION
  Report Type: Report from Study
  Country: None (occurrence: BE)
  Receive Date: 20180130
  Receipt Date: 20180202
  Transmission Date: 20180509
  Serious: No
  Sender: FDA-Public Use
  Company Number: BE-ABBVIE-18K-013-2239207-00

PATIENT
  Age: 66 Year
  Sex: Female

DRUGS (3)
  1. DUODOPA [Suspect]
     Active Substance: CARBIDOPA\LEVODOPA
     Dosage: MD=7ML?CD=2.4ML/HR DURING 16HRS ?ED=1.5ML
     Route: 050
     Dates: start: 20180124, end: 201801
  2. DUODOPA [Suspect]
     Active Substance: CARBIDOPA\LEVODOPA
     Indication: PARKINSON^S DISEASE
     Dosage: MD=7ML?CD=1.4ML/HR DURING 16HRS ?ED=1ML
     Route: 050
     Dates: start: 20180122, end: 20180124
  3. DUODOPA [Suspect]
     Active Substance: CARBIDOPA\LEVODOPA
     Dosage: DOSES CONTINUOUSLY MONITORED AND ADAPTED DURING THIS EVALUATION PHASE
     Route: 050
     Dates: start: 201801

REACTIONS (2)
  - Increased upper airway secretion [Unknown]
  - Stoma site pain [Recovering/Resolving]

NARRATIVE: CASE EVENT DATE: 201801
